FAERS Safety Report 7336187-0 (Version None)
Quarter: 2011Q1

REPORT INFORMATION
  Report Type: 
  Country: None (occurrence: None)
  Receive Date: 20110302
  Receipt Date: 20110302
  Transmission Date: 20110831
  Serious: Yes (Other)
  Sender: FDA-Public Use
  Company Number: None

PATIENT
  Age: 24 Year
  Sex: Female
  Weight: 72.5755 kg

DRUGS (1)
  1. SINGULAIR [Suspect]
     Indication: ASTHMA
     Dosage: 1 TABLET EVERY NIGHT PO
     Route: 048
     Dates: start: 20110223, end: 20110223

REACTIONS (7)
  - ASTHENIA [None]
  - CONFUSIONAL STATE [None]
  - PRODUCT QUALITY ISSUE [None]
  - FEELING ABNORMAL [None]
  - PYREXIA [None]
  - MALAISE [None]
  - MUSCULAR WEAKNESS [None]
